FAERS Safety Report 14317832 (Version 3)
Quarter: 2019Q3

REPORT INFORMATION
  Report Type: Spontaneous
  Country: CN (occurrence: CN)
  Receive Date: 20171222
  Receipt Date: 20190726
  Transmission Date: 20191004
  Serious: Yes (Other)
  Sender: FDA-Public Use
  Company Number: CN-LUPIN PHARMACEUTICALS INC.-2017-07411

PATIENT
  Age: 50 Year
  Sex: Male
  Weight: 75 kg

DRUGS (5)
  1. SODIUM VALPROATE [Suspect]
     Active Substance: VALPROATE SODIUM
     Indication: EPILEPSY
     Dosage: UNK
     Route: 065
  2. SODIUM VALPROATE [Suspect]
     Active Substance: VALPROATE SODIUM
     Dosage: 500 MG, BID
     Route: 065
  3. LAMOTRIGINE. [Suspect]
     Active Substance: LAMOTRIGINE
     Indication: EPILEPSY
     Dosage: 100 MG, QD
     Route: 065
  4. SODIUM VALPROATE [Suspect]
     Active Substance: VALPROATE SODIUM
     Dosage: 1000 MG, BID
     Route: 065
  5. BENZHEXOL                          /00002601/ [Concomitant]
     Active Substance: TRIHEXYPHENIDYL
     Indication: PRODUCT USED FOR UNKNOWN INDICATION
     Dosage: UNK
     Route: 065

REACTIONS (2)
  - Anxiety [Recovering/Resolving]
  - Tremor [Recovering/Resolving]
